FAERS Safety Report 6852004-7 (Version None)
Quarter: 2010Q3

REPORT INFORMATION
  Report Type: 
  Country: None (occurrence: None)
  Receive Date: 20100717
  Receipt Date: 20071101
  Transmission Date: 20110219
  Serious: No
  Sender: FDA-Public Use
  Company Number: US-PFIZER INC-2007094189

PATIENT
  Sex: Male

DRUGS (7)
  1. CHANTIX [Suspect]
     Indication: SMOKING CESSATION THERAPY
     Dates: start: 20070625, end: 20070701
  2. ZOLOFT [Concomitant]
  3. BUSPAR [Concomitant]
  4. TRAZODONE HYDROCHLORIDE [Concomitant]
  5. ALPRAZOLAM [Concomitant]
  6. CLONAZEPAM [Concomitant]
  7. SEROQUEL [Concomitant]

REACTIONS (3)
  - BLOOD CHOLESTEROL ABNORMAL [None]
  - BLOOD SODIUM DECREASED [None]
  - MALAISE [None]
